FAERS Safety Report 7869846-1 (Version None)
Quarter: 2011Q4

REPORT INFORMATION
  Report Type: 
  Country: None (occurrence: None)
  Receive Date: 20111028
  Receipt Date: 20110110
  Transmission Date: 20120403
  Serious: No
  Sender: FDA-Public Use
  Company Number: US-AMGEN-USASP2011001499

PATIENT
  Age: 34 Year
  Sex: Female

DRUGS (5)
  1. PRENATAL VITAMINS                  /01549301/ [Concomitant]
     Dosage: UNK
     Route: 048
  2. METHOTREXATE [Concomitant]
  3. PREDNISONE [Concomitant]
     Dosage: 7.5 UNK, UNK
     Route: 048
  4. SYNTHROID [Concomitant]
     Dosage: 88 A?G, QD
     Route: 048
  5. ENBREL [Suspect]
     Indication: RHEUMATOID ARTHRITIS
     Dosage: 50 MG, QWK
     Route: 058
     Dates: start: 20070430, end: 20101110

REACTIONS (1)
  - RHEUMATOID ARTHRITIS [None]
